FAERS Safety Report 10083987 (Version 2)
Quarter: 2014Q2

REPORT INFORMATION
  Report Type: Spontaneous
  Country: JP (occurrence: JP)
  Receive Date: 20140417
  Receipt Date: 20140515
  Transmission Date: 20141212
  Serious: No
  Sender: FDA-Public Use
  Company Number: JP-SA-2014SA048487

PATIENT
  Age: 50 Year
  Sex: Male
  Weight: 72 kg

DRUGS (2)
  1. DELLEGRA [Suspect]
     Indication: RHINITIS ALLERGIC
     Dosage: DOSE: 2 TABLETS
     Route: 048
     Dates: start: 20131228, end: 20131229
  2. DELLEGRA [Suspect]
     Indication: SEASONAL ALLERGY
     Dosage: DOSE: 2 TABLETS
     Route: 048
     Dates: start: 20131228, end: 20131229

REACTIONS (4)
  - Lip swelling [Recovered/Resolved]
  - Eyelid oedema [Recovered/Resolved]
  - Urticaria [Recovered/Resolved]
  - Pruritus [Recovered/Resolved]
